FAERS Safety Report 9365888 (Version 1)
Quarter: 2013Q2

REPORT INFORMATION
  Report Type: Spontaneous
  Country: DE (occurrence: DE)
  Receive Date: 20130625
  Receipt Date: 20130625
  Transmission Date: 20140414
  Serious: Yes (Hospitalization, Other)
  Sender: FDA-Public Use
  Company Number: DE-B.I. PHARMACEUTICALS,INC./RIDGEFIELD-2013-BI-18366GD

PATIENT
  Age: 48 Year
  Sex: Male
  Weight: 153 kg

DRUGS (3)
  1. PRADAXA [Suspect]
     Indication: ATRIAL FIBRILLATION
     Dosage: 300 MG
     Route: 048
  2. PLAVIX [Suspect]
     Indication: THROMBOSIS PROPHYLAXIS
  3. PROTON-PUMP INHIBITOR [Suspect]

REACTIONS (7)
  - Embolic cerebral infarction [Unknown]
  - Drug name confusion [Unknown]
  - Monoparesis [Unknown]
  - VIIth nerve paralysis [Unknown]
  - Dysarthria [Unknown]
  - Drug level below therapeutic [Unknown]
  - Hypercoagulation [Unknown]
